FAERS Safety Report 11433090 (Version 2)
Quarter: 2018Q1

REPORT INFORMATION
  Report Type: Report from Study
  Country: None (occurrence: CA)
  Receive Date: 20150829
  Receipt Date: 20180329
  Transmission Date: 20180508
  Serious: Yes (Other)
  Sender: FDA-Public Use
  Company Number: CA-ABBVIE-15K-028-1451591-00

PATIENT
  Sex: Male

DRUGS (1)
  1. HUMIRA [Suspect]
     Active Substance: ADALIMUMAB
     Indication: CROHN^S DISEASE
     Route: 058
     Dates: start: 20120426, end: 2016

REACTIONS (3)
  - Malaise [Recovering/Resolving]
  - General physical health deterioration [Recovering/Resolving]
  - Bladder cancer [Unknown]

NARRATIVE: CASE EVENT DATE: 2013
